FAERS Safety Report 19592258 (Version 2)
Quarter: 2021Q4

REPORT INFORMATION
  Report Type: Other
  Country: BR (occurrence: BR)
  Receive Date: 20210722
  Receipt Date: 20211021
  Transmission Date: 20220303
  Serious: No
  Sender: FDA-Public Use
  Company Number: BR-TOLMAR, INC.-21BR028122

PATIENT

DRUGS (1)
  1. ELIGARD [Suspect]
     Active Substance: LEUPROLIDE ACETATE
     Indication: Product used for unknown indication
     Dosage: 22.5 MILLIGRAM

REACTIONS (4)
  - Product dose omission issue [Unknown]
  - Intercepted product preparation error [Unknown]
  - Needle issue [Unknown]
  - Device leakage [Unknown]
